FAERS Safety Report 8355309 (Version 4)
Quarter: 2012Q4

REPORT INFORMATION
  Report Type: 
  Country: US (occurrence: US)
  Receive Date: 20120126
  Receipt Date: 20121120
  Transmission Date: 20130627
  Serious: Yes (Other)
  Sender: FDA-Public Use
  Company Number: US-PFIZER INC-2012019369

PATIENT
  Age: 66 Year
  Sex: Female
  Weight: 56.69 kg

DRUGS (6)
  1. RAPAMUNE [Suspect]
     Indication: PROPHYLAXIS AGAINST TRANSPLANT REJECTION
     Dosage: 1 mg, daily
     Route: 048
     Dates: start: 20110729
  2. RAPAMUNE [Suspect]
     Indication: KIDNEY TRANSPLANT
  3. PROGRAF [Concomitant]
     Indication: KIDNEY TRANSPLANT
     Dosage: 1 mg, daily
     Route: 048
  4. PREDNISONE [Concomitant]
     Indication: KIDNEY TRANSPLANT
     Dosage: 5 mg, daily
     Route: 048
  5. ENALAPRIL MALEATE [Concomitant]
     Indication: BLOOD PRESSURE ABNORMAL
     Dosage: 10 mg, 2x/day
     Route: 048
  6. METOPROLOL TARTRATE [Concomitant]
     Indication: BLOOD PRESSURE ABNORMAL
     Dosage: 25 mg, 2x/day
     Route: 048

REACTIONS (2)
  - Pulmonary hypertension [Unknown]
  - Nasopharyngitis [Recovering/Resolving]
